FAERS Safety Report 6152919-1 (Version None)
Quarter: 2009Q2

REPORT INFORMATION
  Report Type: 
  Country: None (occurrence: None)
  Receive Date: 20090413
  Receipt Date: 20090402
  Transmission Date: 20091009
  Serious: Yes (Other)
  Sender: FDA-Public Use
  Company Number: FR-ELI_LILLY_AND_COMPANY-FR200904000627

PATIENT
  Age: 54 Year
  Sex: Female

DRUGS (1)
  1. CYMBALTA [Suspect]
     Indication: DEPRESSION
     Dosage: 60 MG, DAILY (1/D)
     Route: 048
     Dates: start: 20080501

REACTIONS (5)
  - ECCHYMOSIS [None]
  - HYPERPHOSPHATASAEMIA [None]
  - LEUKOPENIA [None]
  - PURPURA [None]
  - THROMBOCYTOPENIA [None]
